FAERS Safety Report 21469407 (Version 2)
Quarter: 2022Q4

REPORT INFORMATION
  Report Type: Spontaneous
  Country: CN (occurrence: CN)
  Receive Date: 20221018
  Receipt Date: 20221021
  Transmission Date: 20230112
  Serious: Yes (Other)
  Sender: FDA-Public Use
  Company Number: None

PATIENT
  Age: 67 Year
  Sex: Male

DRUGS (5)
  1. LINEZOLID [Suspect]
     Active Substance: LINEZOLID
     Indication: Pericarditis tuberculous
     Dosage: 600 MILLIGRAM, QD (EVERY 1 DAY)
     Route: 065
  2. ISONIAZID [Concomitant]
     Active Substance: ISONIAZID
     Indication: Pericarditis tuberculous
     Dosage: UNK
     Route: 065
  3. MEROPENEM [Concomitant]
     Active Substance: MEROPENEM
     Indication: Pericarditis tuberculous
     Dosage: UNK
     Route: 065
  4. MOXIFLOXACIN [Concomitant]
     Active Substance: MOXIFLOXACIN
     Indication: Pericarditis tuberculous
     Dosage: UNK
     Route: 065
  5. RIFAMPIN [Concomitant]
     Active Substance: RIFAMPIN
     Indication: Pericarditis tuberculous
     Dosage: UNK
     Route: 065

REACTIONS (3)
  - Escherichia infection [Unknown]
  - Dysbiosis [Unknown]
  - Trichoglossia [Recovered/Resolved]
